FAERS Safety Report 6211846-1 (Version None)
Quarter: 2009Q2

REPORT INFORMATION
  Report Type: 
  Country: None (occurrence: None)
  Receive Date: 20090602
  Receipt Date: 20090519
  Transmission Date: 20091009
  Serious: Yes (Other)
  Sender: FDA-Public Use
  Company Number: JP-PFIZER INC-2009202337

PATIENT
  Age: 3 Day

DRUGS (4)
  1. ZOLOFT [Suspect]
     Route: 064
  2. SOLANAX [Suspect]
     Route: 064
  3. AMOBAN [Suspect]
  4. SEROQUEL [Suspect]

REACTIONS (2)
  - DRUG EXPOSURE DURING PREGNANCY [None]
  - DRUG WITHDRAWAL SYNDROME NEONATAL [None]
